FAERS Safety Report 6082685-X (Version None)
Quarter: 2009Q1

REPORT INFORMATION
  Report Type: 
  Country: None (occurrence: None)
  Receive Date: 20090218
  Receipt Date: 20090210
  Transmission Date: 20090719
  Serious: Yes (Other)
  Sender: FDA-Public Use
  Company Number: PHHY2009IT05276

PATIENT
  Sex: Male

DRUGS (4)
  1. ZOMETA [Suspect]
     Indication: METASTASES TO BONE
     Dosage: 4 MG, QMO
     Route: 042
     Dates: start: 20090121, end: 20090121
  2. ZOMETA [Suspect]
     Indication: PROSTATE CANCER
  3. TAXOTERE [Concomitant]
     Dosage: 6 CYCLES
     Dates: start: 20081015, end: 20081119
  4. TAXOTERE [Concomitant]
     Dosage: 4 ADMINISTRATIONS
     Dates: start: 20081217, end: 20090128

REACTIONS (3)
  - GINGIVAL PAIN [None]
  - OSTEONECROSIS [None]
  - SURGERY [None]
